FAERS Safety Report 13002781 (Version 1)
Quarter: 2016Q4

REPORT INFORMATION
  Report Type: Spontaneous
  Country: US (occurrence: US)
  Receive Date: 20161206
  Receipt Date: 20161206
  Transmission Date: 20170207
  Serious: Yes (Life-Threatening, Disabling)
  Sender: FDA-Public Use
  Company Number: None

PATIENT
  Age: 52 Year
  Sex: Female
  Weight: 97.2 kg

DRUGS (9)
  1. ATENOLOL. [Concomitant]
     Active Substance: ATENOLOL
  2. CALCIUM HYDROCHLORIDE [Concomitant]
  3. MILK THISTLE [Concomitant]
     Active Substance: MILK THISTLE
  4. JANUMET [Suspect]
     Active Substance: METFORMIN HYDROCHLORIDE\SITAGLIPTIN PHOSPHATE
     Indication: DIABETES MELLITUS
     Dosage: ?          QUANTITY:1 CAPSULE(S);?
     Route: 048
     Dates: start: 20160901, end: 20161201
  5. DICYCLOMINE [Concomitant]
     Active Substance: DICYCLOMINE HYDROCHLORIDE
  6. LEVOTHYROXINE. [Concomitant]
     Active Substance: LEVOTHYROXINE
  7. MULTI VITAMIN [Concomitant]
     Active Substance: VITAMINS
  8. OMNEPRAZOLE [Concomitant]
  9. VITAMIN D3 [Concomitant]
     Active Substance: CHOLECALCIFEROL

REACTIONS (13)
  - Drug hypersensitivity [None]
  - Skin reaction [None]
  - Dizziness [None]
  - Rash [None]
  - Oropharyngeal pain [None]
  - Feeling abnormal [None]
  - Constipation [None]
  - Back pain [None]
  - Lactic acidosis [None]
  - Asthenia [None]
  - Glycosylated haemoglobin increased [None]
  - Blood glucose increased [None]
  - Weight increased [None]

NARRATIVE: CASE EVENT DATE: 20161201
